FAERS Safety Report 6368070-1 (Version None)
Quarter: 2009Q3

REPORT INFORMATION
  Report Type: 
  Country: None (occurrence: None)
  Receive Date: 20090922
  Receipt Date: 20090914
  Transmission Date: 20100115
  Serious: Yes (Death)
  Sender: FDA-Public Use
  Company Number: US-ROCHE-657538

PATIENT
  Age: 75 Year

DRUGS (7)
  1. MYCOPHENOLATE MOFETIL [Suspect]
     Route: 065
  2. SOLU-MEDROL [Suspect]
     Route: 042
  3. TACROLIMUS [Suspect]
     Dosage: TO ACHIEVE TROUGH LEVEL BETWEEN 6 AND 10 NG/ML
     Route: 065
  4. PREDNISONE [Suspect]
     Route: 065
  5. PREDNISONE [Suspect]
     Route: 065
  6. PREDNISONE [Suspect]
     Dosage: DOSE TAPERED BY 3 MONTHS
     Route: 065
  7. THYMOGLOBULIN [Suspect]
     Dosage: DIVIDED DOSES ON DAY 0, 1 AND 2 INDUCTION THERAPY WITH RABBIT ANTITHYMOCYTE GLOBULIN.
     Route: 065

REACTIONS (1)
  - DEATH [None]
